FAERS Safety Report 8983280 (Version 1)
Quarter: 2012Q4

REPORT INFORMATION
  Report Type: 
  Country: NL (occurrence: NL)
  Receive Date: 20121224
  Receipt Date: 20121224
  Transmission Date: 20130627
  Serious: Yes (Death, Other)
  Sender: FDA-Public Use
  Company Number: PHHY2012NL118394

PATIENT
  Sex: Male

DRUGS (4)
  1. ZOMETA [Suspect]
     Indication: PROSTATE CANCER METASTATIC
     Dosage: 4 mg/ 100ml once per 42 days
  2. ZOMETA [Suspect]
     Dosage: 4 mg/ 100ml once per 42 days
     Dates: start: 20120920
  3. ZOMETA [Suspect]
     Dosage: 4 mg/ 100ml once per 42 days
     Dates: start: 20121101
  4. ZOMETA [Suspect]
     Dosage: 4 mg/ 100ml once per 42 days
     Dates: start: 20121213

REACTIONS (2)
  - Prostate cancer [Fatal]
  - Terminal state [Unknown]
